FAERS Safety Report 7820614-6 (Version None)
Quarter: 2011Q4

REPORT INFORMATION
  Report Type: 
  Country: None (occurrence: None)
  Receive Date: 20111018
  Receipt Date: 20111012
  Transmission Date: 20120403
  Serious: Yes (Other)
  Sender: FDA-Public Use
  Company Number: US-AMGEN-USASP2011052823

PATIENT
  Age: 55 Year
  Sex: Male

DRUGS (1)
  1. ENBREL [Suspect]
     Indication: ANKYLOSING SPONDYLITIS
     Dosage: 50 MG, QWK
     Dates: start: 20101031, end: 20110701

REACTIONS (8)
  - SINUSITIS [None]
  - CARDIAC FLUTTER [None]
  - HYPERHIDROSIS [None]
  - DYSPNOEA [None]
  - MUSCULOSKELETAL PAIN [None]
  - ARRHYTHMIA [None]
  - PAIN [None]
  - ARTHRALGIA [None]
